FAERS Safety Report 15148006 (Version 4)
Quarter: 2018Q3

REPORT INFORMATION
  Report Type: Spontaneous
  Country: JP (occurrence: JP)
  Receive Date: 20180716
  Receipt Date: 20180806
  Transmission Date: 20181010
  Serious: Yes (Other)
  Sender: FDA-Public Use
  Company Number: PHJP2018JP013694

PATIENT
  Age: 81 Year
  Sex: Female

DRUGS (5)
  1. VALSARTAN TAB [Suspect]
     Active Substance: VALSARTAN
     Indication: HYPERTENSION
     Dosage: UNK
     Route: 048
  2. REVOLADE TAB [Suspect]
     Active Substance: ELTROMBOPAG
     Indication: APLASTIC ANAEMIA
     Dosage: UNK
     Route: 048
  3. REVOLADE TAB [Suspect]
     Active Substance: ELTROMBOPAG
     Dosage: 100 MG, UNK
     Route: 048
     Dates: start: 201802
  4. NEORAL [Suspect]
     Active Substance: CYCLOSPORINE
     Indication: APLASTIC ANAEMIA
     Dosage: UNK
     Route: 048
     Dates: start: 201801
  5. GASTER [Concomitant]
     Active Substance: FAMOTIDINE
     Indication: PRODUCT USED FOR UNKNOWN INDICATION
     Dosage: UNK
     Route: 048

REACTIONS (8)
  - Aplastic anaemia [Unknown]
  - Bone marrow failure [Unknown]
  - Headache [Unknown]
  - Anaemia [Unknown]
  - White blood cell count decreased [Unknown]
  - Drug effect incomplete [Not Recovered/Not Resolved]
  - Fatigue [Unknown]
  - Paroxysmal nocturnal haemoglobinuria [Unknown]
